FAERS Safety Report 5867135-8 (Version None)
Quarter: 2008Q3

REPORT INFORMATION
  Report Type: 
  Country: None (occurrence: None)
  Receive Date: 20080828
  Receipt Date: 20080828
  Transmission Date: 20090109
  Serious: Yes (Other)
  Sender: FDA-Public Use
  Company Number: None

PATIENT
  Sex: Female
  Weight: 83.5526 kg

DRUGS (1)
  1. CLOZARIL [Suspect]
     Indication: SCHIZOPHRENIA, PARANOID TYPE
     Dosage: 300 MG QHS PO
     Route: 048
     Dates: start: 20080530, end: 20080827

REACTIONS (2)
  - TYPE 2 DIABETES MELLITUS [None]
  - WEIGHT INCREASED [None]
